FAERS Safety Report 12696757 (Version 1)
Quarter: 2016Q3

REPORT INFORMATION
  Report Type: Spontaneous
  Country: US (occurrence: US)
  Receive Date: 20160830
  Receipt Date: 20160830
  Transmission Date: 20161109
  Serious: No
  Sender: FDA-Public Use
  Company Number: US-LUPIN PHARMACEUTICALS INC.-E2B_00005598

PATIENT
  Sex: Male
  Weight: 147.55 kg

DRUGS (1)
  1. FENOFIBRATE 160 MG [Suspect]
     Active Substance: FENOFIBRATE
     Indication: BLOOD CHOLESTEROL INCREASED
     Route: 048
     Dates: start: 20160215

REACTIONS (3)
  - Product packaging issue [Unknown]
  - Drug dispensing error [Unknown]
  - No adverse event [Unknown]
